FAERS Safety Report 12454170 (Version 1)
Quarter: 2016Q2

REPORT INFORMATION
  Report Type: Spontaneous
  Country: US (occurrence: US)
  Receive Date: 20160610
  Receipt Date: 20160610
  Transmission Date: 20160815
  Serious: No
  Sender: FDA-Public Use
  Company Number: US-009507513-1605USA013733

PATIENT
  Sex: Female
  Weight: 81.63 kg

DRUGS (3)
  1. NEXPLANON [Suspect]
     Active Substance: ETONOGESTREL
     Dosage: UNK
     Route: 059
  2. VITAMINS (UNSPECIFIED) [Concomitant]
     Active Substance: VITAMINS
  3. BELVIQ [Concomitant]
     Active Substance: LORCASERIN HYDROCHLORIDE

REACTIONS (1)
  - Vasculitis [Not Recovered/Not Resolved]
